FAERS Safety Report 9837867 (Version 1)
Quarter: 2014Q1

REPORT INFORMATION
  Report Type: Spontaneous
  Country: DK (occurrence: DK)
  Receive Date: 20140123
  Receipt Date: 20140123
  Transmission Date: 20141002
  Serious: Yes (Other)
  Sender: FDA-Public Use
  Company Number: DK-B.I. PHARMACEUTICALS,INC./RIDGEFIELD-2014-BI-02130DB

PATIENT
  Age: 83 Year
  Sex: Female

DRUGS (5)
  1. SIFROL [Suspect]
     Indication: RESTLESS LEGS SYNDROME
     Dosage: DALIY DOSE:1 AND HALF TABLET
     Route: 048
  2. SIFROL [Suspect]
     Dosage: 0.176 MG
     Route: 048
     Dates: end: 201210
  3. SIFROL [Suspect]
     Dosage: 0.18 MG
     Route: 048
     Dates: start: 20121106, end: 201212
  4. TRADOLAN [Suspect]
     Indication: PAIN
     Dosage: 200 MG
     Route: 048
     Dates: start: 20121023, end: 20121024
  5. EFEXOR DEPOT [Suspect]
     Indication: PRODUCT USED FOR UNKNOWN INDICATION
     Dosage: 37.5 MG
     Dates: start: 20121024, end: 20121024

REACTIONS (5)
  - Delirium [Not Recovered/Not Resolved]
  - Anxiety [Not Recovered/Not Resolved]
  - Hallucination [Not Recovered/Not Resolved]
  - Aggression [Not Recovered/Not Resolved]
  - Cognitive disorder [Not Recovered/Not Resolved]
